FAERS Safety Report 8058759-0 (Version None)
Quarter: 2012Q1

REPORT INFORMATION
  Report Type: 
  Country: None (occurrence: None)
  Receive Date: 20120119
  Receipt Date: 20120119
  Transmission Date: 20120608
  Serious: Yes (Other)
  Sender: FDA-Public Use
  Company Number: None

PATIENT
  Age: 56 Year
  Sex: Female
  Weight: 81.6475 kg

DRUGS (1)
  1. LEVOFLOXACIN [Suspect]
     Indication: BRONCHITIS
     Dosage: 1-500MG TAB DAIL ORAL
     Route: 048
     Dates: start: 20111220, end: 20111226

REACTIONS (10)
  - DIZZINESS [None]
  - TREMOR [None]
  - MYALGIA [None]
  - VERTIGO [None]
  - DIARRHOEA [None]
  - HYPERHIDROSIS [None]
  - VOMITING [None]
  - NAUSEA [None]
  - HEART RATE INCREASED [None]
  - ARTHRALGIA [None]
